FAERS Safety Report 21095198 (Version 1)
Quarter: 2022Q3

REPORT INFORMATION
  Report Type: Spontaneous
  Country: US (occurrence: None)
  Receive Date: 20220717
  Receipt Date: 20220717
  Transmission Date: 20221027
  Serious: Yes (Disabling)
  Sender: FDA-Public Use
  Company Number: None

PATIENT
  Age: 16 Year
  Sex: Male
  Weight: 58.5 kg

DRUGS (1)
  1. ASTEPRO [Suspect]
     Active Substance: AZELASTINE HYDROCHLORIDE
     Indication: Rhinitis
     Dosage: OTHER QUANTITY : 4 SPRAY(S);?FREQUENCY : DAILY;?OTHER ROUTE : SPRAYED IN THE NOSE;?
     Route: 050
     Dates: end: 20131231

REACTIONS (3)
  - Depersonalisation/derealisation disorder [None]
  - Anxiety [None]
  - Derealisation [None]

NARRATIVE: CASE EVENT DATE: 20120102
